FAERS Safety Report 25808536 (Version 1)
Quarter: 2025Q3

REPORT INFORMATION
  Report Type: Spontaneous
  Country: US (occurrence: None)
  Receive Date: 20250915
  Receipt Date: 20250915
  Transmission Date: 20251021
  Serious: Yes (Other)
  Sender: FDA-CTU
  Company Number: None

PATIENT
  Age: 20 Year
  Weight: 59.1 kg

DRUGS (1)
  1. FOSAPREPITANT [Suspect]
     Active Substance: FOSAPREPITANT
     Indication: Type 2 diabetes mellitus
     Route: 041
     Dates: start: 20250912, end: 20250915

REACTIONS (5)
  - Hypoaesthesia [None]
  - Paraesthesia [None]
  - Flushing [None]
  - Ear, nose and throat disorder [None]
  - Dizziness [None]

NARRATIVE: CASE EVENT DATE: 20250912
